FAERS Safety Report 7289553-6 (Version None)
Quarter: 2011Q1

REPORT INFORMATION
  Report Type: 
  Country: None (occurrence: None)
  Receive Date: 20110214
  Receipt Date: 20110202
  Transmission Date: 20110831
  Serious: Yes (Hospitalization, Other)
  Sender: FDA-Public Use
  Company Number: US-RB-020536-11

PATIENT
  Age: 14 Year
  Sex: Female

DRUGS (3)
  1. DELSYM [Suspect]
  2. VALIUM [Concomitant]
  3. PROZAC [Concomitant]

REACTIONS (11)
  - VISION BLURRED [None]
  - SUICIDE ATTEMPT [None]
  - HYPERHIDROSIS [None]
  - SOMNOLENCE [None]
  - CONVULSION [None]
  - LOSS OF CONSCIOUSNESS [None]
  - GAIT DISTURBANCE [None]
  - CONFUSIONAL STATE [None]
  - DIZZINESS [None]
  - TREMOR [None]
  - DIPLOPIA [None]
